FAERS Safety Report 7655792-5 (Version None)
Quarter: 2011Q3

REPORT INFORMATION
  Report Type: 
  Country: None (occurrence: None)
  Receive Date: 20110801
  Receipt Date: 20110714
  Transmission Date: 20111222
  Serious: Yes (Other)
  Sender: FDA-Public Use
  Company Number: 2011MA008895

PATIENT
  Age: 62 Year
  Sex: Male

DRUGS (2)
  1. TRIAMCINOLONE ACETONIDE [Suspect]
     Indication: CYSTOID MACULAR OEDEMA
     Dosage: 4 MG;IO
     Route: 031
     Dates: start: 20061001
  2. STEROIDS [Suspect]
     Indication: CYSTOID MACULAR OEDEMA
     Dosage: ;UNK;TOP
     Route: 061
     Dates: start: 20061001

REACTIONS (11)
  - HYPOPYON [None]
  - TOXIC SHOCK SYNDROME [None]
  - VISUAL ACUITY REDUCED [None]
  - EYE INFLAMMATION [None]
  - DEPOSIT EYE [None]
  - ENDOPHTHALMITIS [None]
  - PSEUDOENDOPHTHALMITIS [None]
  - INTRAOCULAR PRESSURE INCREASED [None]
  - EXTRAOCULAR MUSCLE PARESIS [None]
  - CATARACT SUBCAPSULAR [None]
  - POST PROCEDURAL COMPLICATION [None]
